FAERS Safety Report 9099173 (Version 1)
Quarter: 2013Q1

REPORT INFORMATION
  Report Type: Spontaneous
  Country: US (occurrence: US)
  Receive Date: 20130214
  Receipt Date: 20130214
  Transmission Date: 20140127
  Serious: No
  Sender: FDA-Public Use
  Company Number: US-009507513-1302USA003642

PATIENT
  Age: 45 Year
  Sex: Male

DRUGS (1)
  1. PROPECIA [Suspect]
     Dosage: UNK
     Route: 048
     Dates: start: 2008

REACTIONS (2)
  - Breast discharge [Unknown]
  - Confusional state [Unknown]
